FAERS Safety Report 6882997-3 (Version None)
Quarter: 2010Q3

REPORT INFORMATION
  Report Type: 
  Country: None (occurrence: None)
  Receive Date: 20100727
  Receipt Date: 20100716
  Transmission Date: 20110219
  Serious: Yes (Life-Threatening, Hospitalization)
  Sender: FDA-Public Use
  Company Number: US-AMGEN-KDC424943

PATIENT
  Sex: Female

DRUGS (8)
  1. DENOSUMAB [Suspect]
     Indication: OSTEOPOROSIS POSTMENOPAUSAL
     Route: 058
     Dates: start: 20090115
  2. VITAMIN B-12 [Concomitant]
     Dates: start: 20080801
  3. FERROUS SULFATE [Concomitant]
     Route: 048
     Dates: start: 20080801
  4. PRILOSEC [Concomitant]
     Dates: start: 20060721
  5. LISINOPRIL AND HYDROCHLOROTHIAZIDE [Concomitant]
     Route: 048
     Dates: start: 20081001
  6. ZINC [Concomitant]
  7. MAGNESIUM [Concomitant]
     Dates: start: 20090201
  8. OSCAL [Concomitant]

REACTIONS (1)
  - PULMONARY EMBOLISM [None]
